FAERS Safety Report 17151234 (Version 2)
Quarter: 2020Q1

REPORT INFORMATION
  Report Type: Spontaneous
  Country: US (occurrence: US)
  Receive Date: 20191213
  Receipt Date: 20200225
  Transmission Date: 20200409
  Serious: No
  Sender: FDA-Public Use
  Company Number: US-PFIZER INC-2019538344

PATIENT
  Age: 59 Year
  Sex: Female

DRUGS (2)
  1. IBRANCE [Suspect]
     Active Substance: PALBOCICLIB
     Indication: BREAST CANCER
     Dosage: 125 MG, DAILY
     Dates: start: 20191115
  2. IBRANCE [Suspect]
     Active Substance: PALBOCICLIB
     Dosage: 100 MG, CYCLIC [100MG CAPS TAKE 1 CAPSULE (100MG) BY MOUTH DAILY FOR 21 DAYS AND THEN 7 DAYS OFF]
     Route: 048
     Dates: start: 20191120

REACTIONS (2)
  - White blood cell count decreased [Unknown]
  - Diarrhoea [Unknown]
